FAERS Safety Report 9104447 (Version 1)
Quarter: 2013Q1

REPORT INFORMATION
  Report Type: Spontaneous
  Country: US (occurrence: US)
  Receive Date: 20130220
  Receipt Date: 20130220
  Transmission Date: 20140127
  Serious: Yes (Other)
  Sender: FDA-Public Use
  Company Number: US-ASTRAZENECA-2013SE10302

PATIENT
  Age: 67 Year
  Sex: Female
  Weight: 81.6 kg

DRUGS (3)
  1. NEXIUM [Suspect]
     Indication: GASTROOESOPHAGEAL REFLUX DISEASE
     Route: 048
  2. ASPIRIN [Suspect]
     Route: 065
  3. MOTRIN [Suspect]
     Route: 065

REACTIONS (6)
  - Brain neoplasm [Unknown]
  - Drug hypersensitivity [Unknown]
  - Dyspepsia [Unknown]
  - Adverse event [Unknown]
  - Malaise [Unknown]
  - Drug ineffective [Unknown]
